FAERS Safety Report 6728602-8 (Version None)
Quarter: 2010Q2

REPORT INFORMATION
  Report Type: 
  Country: None (occurrence: None)
  Receive Date: 20100517
  Receipt Date: 20100510
  Transmission Date: 20101027
  Serious: Yes (Other)
  Sender: FDA-Public Use
  Company Number: BR-PFIZER INC-2010055227

PATIENT
  Sex: Female

DRUGS (1)
  1. CHAMPIX [Suspect]
     Indication: TOBACCO USER
     Dosage: UNK
     Route: 048

REACTIONS (6)
  - AGITATION [None]
  - IRRITABILITY [None]
  - PERSECUTORY DELUSION [None]
  - PSYCHIATRIC SYMPTOM [None]
  - PSYCHOTIC DISORDER [None]
  - SUICIDAL IDEATION [None]
